FAERS Safety Report 8483054-5 (Version None)
Quarter: 2012Q2

REPORT INFORMATION
  Report Type: 
  Country: None (occurrence: None)
  Receive Date: 20120626
  Receipt Date: 20120614
  Transmission Date: 20120825
  Serious: Yes (Other)
  Sender: FDA-Public Use
  Company Number: DSA_57972_2012

PATIENT

DRUGS (4)
  1. FLUOROURACIL [Suspect]
     Indication: METASTATIC GASTRIC CANCER
     Dosage: (400 MG/M2 INTRAVENOUS BOLUS), (600 MG/M2 INTRAVENOUS (NOT OTHERWISE SPECIFIED))
     Route: 042
  2. LEUCOVORIN CALCIUM [Suspect]
     Indication: METASTATIC GASTRIC CANCER
     Dosage: (200 MG/M2 INTRAVENOUS (NOT OTHERWISE SPECIFIED))
     Route: 042
  3. ALL OTHER THERAPEUTIC PRODUCTS (ALL OTHER THERAPEUTIC PRODUCTS) (UNKNO [Concomitant]
  4. OXALIPLATIN [Suspect]
     Indication: METASTATIC GASTRIC CANCER
     Dosage: (85 MG/M2 (EVERY OTHER WEEK) INTRAVENOUS (NOT OTHERWISE SPECIFIED))
     Route: 042

REACTIONS (1)
  - DIARRHOEA [None]
